FAERS Safety Report 9922746 (Version 1)
Quarter: 2014Q1

REPORT INFORMATION
  Report Type: Spontaneous
  Country: US (occurrence: US)
  Receive Date: 20140225
  Receipt Date: 20140225
  Transmission Date: 20141002
  Serious: No
  Sender: FDA-Public Use
  Company Number: US-009507513-1402USA010504

PATIENT
  Sex: Male

DRUGS (4)
  1. TEMODAR [Suspect]
     Dosage: 360 MG, HS, X5 DAYS
     Route: 048
  2. TEMODAR [Suspect]
     Indication: BRAIN NEOPLASM
     Dosage: 5 DAYS EACH CYCLE, WITH 23 DAYS IN BETWEEN EACH CYCLE
     Route: 048
     Dates: start: 201401
  3. LAMICTAL [Concomitant]
  4. VIMPAT [Concomitant]

REACTIONS (2)
  - Constipation [Not Recovered/Not Resolved]
  - Nausea [Unknown]
